FAERS Safety Report 14448766 (Version 4)
Quarter: 2018Q1

REPORT INFORMATION
  Report Type: Spontaneous
  Country: US (occurrence: US)
  Receive Date: 20180126
  Receipt Date: 20180313
  Transmission Date: 20180509
  Serious: No
  Sender: FDA-Public Use
  Company Number: US-LUNDBECK-DKLU2042900

PATIENT
  Age: 47 Year
  Sex: Female

DRUGS (3)
  1. NORTHERA [Suspect]
     Active Substance: DROXIDOPA
     Indication: ORTHOSTATIC HYPOTENSION
     Route: 048
     Dates: start: 20180118, end: 20180118
  2. NORTHERA [Suspect]
     Active Substance: DROXIDOPA
     Route: 048
     Dates: start: 20180123, end: 20180124
  3. NORTHERA [Suspect]
     Active Substance: DROXIDOPA
     Route: 048
     Dates: start: 20180125

REACTIONS (15)
  - Dizziness [Unknown]
  - Incorrect dose administered [Unknown]
  - Migraine [Unknown]
  - Hypotension [Unknown]
  - Fatigue [Unknown]
  - Malaise [Unknown]
  - Anxiety [Unknown]
  - Urticaria [Recovered/Resolved]
  - Heart rate increased [Unknown]
  - Hypoaesthesia [Recovered/Resolved]
  - Orthostatic hypotension [Unknown]
  - Drug dose omission [Unknown]
  - Headache [Recovering/Resolving]
  - Hyperhidrosis [Unknown]
  - Blood pressure decreased [Unknown]

NARRATIVE: CASE EVENT DATE: 20180118
